FAERS Safety Report 5170040-6 (Version None)
Quarter: 2006Q4

REPORT INFORMATION
  Report Type: 
  Country: None (occurrence: None)
  Receive Date: 20061212
  Receipt Date: 20061204
  Transmission Date: 20070319
  Serious: Yes (Congenital Anomaly)
  Sender: FDA-Public Use
  Company Number: FR-ELI_LILLY_AND_COMPANY-FR200612000453

PATIENT
  Age: 1 Day

DRUGS (4)
  1. HUMALOG [Suspect]
     Route: 064
  2. FLIXOTIDE [Concomitant]
     Route: 064
  3. SINGULAIR [Concomitant]
     Route: 064
  4. VENTOLIN [Concomitant]
     Route: 064

REACTIONS (4)
  - ATRIAL SEPTAL DEFECT [None]
  - DRUG EXPOSURE DURING PREGNANCY [None]
  - FOETAL CYSTIC HYGROMA [None]
  - PULMONARY ARTERY STENOSIS CONGENITAL [None]
